FAERS Safety Report 8630438 (Version 4)
Quarter: 2013Q3

REPORT INFORMATION
  Report Type: Report from Study
  Country: JP (occurrence: JP)
  Receive Date: 20120622
  Receipt Date: 20130912
  Transmission Date: 20140515
  Serious: Yes (Other)
  Sender: FDA-Public Use
  Company Number: JP-VERTEX PHARMACEUTICALS INC.-AE-2012-008906

PATIENT
  Age: 68 Year
  Sex: Female

DRUGS (10)
  1. VX-950 (TELAPREVIR) [Suspect]
     Indication: CHRONIC HEPATITIS C
     Dosage: 2250 MG, QD
     Route: 048
     Dates: start: 20120425, end: 20120523
  2. VX-950 (TELAPREVIR) [Suspect]
     Dosage: 1500 MG, QD
     Route: 048
     Dates: start: 20120524, end: 20120613
  3. VX-950 (TELAPREVIR) [Suspect]
     Dosage: 750 MG, QD
     Route: 048
     Dates: start: 20120614, end: 20120718
  4. RIBAVIRIN [Suspect]
     Indication: CHRONIC HEPATITIS C
     Dosage: 600 MG, QD
     Route: 048
     Dates: start: 20120425, end: 20120606
  5. RIBAVIRIN [Suspect]
     Dosage: 400 MG, QD
     Route: 048
     Dates: start: 20120607
  6. PEGINTERFERON ALFA-2B [Suspect]
     Indication: CHRONIC HEPATITIS C
     Dosage: 1.5 ?G/KG, QW
     Route: 058
     Dates: start: 20120425
  7. CRAVIT [Concomitant]
     Dosage: 500 MG, PRN
     Route: 048
     Dates: start: 20120502, end: 20120529
  8. ZYLORIC [Concomitant]
     Dosage: 200 MG, QD
     Route: 048
     Dates: end: 20120718
  9. BAKTAR [Concomitant]
     Dosage: 1 DF, PRN
     Route: 048
     Dates: start: 20120530, end: 20120731
  10. AZUNOL [Concomitant]
     Dosage: Q.S/DAY, PRN
     Route: 049
     Dates: start: 20120711, end: 20120815

REACTIONS (3)
  - White blood cell count decreased [Recovered/Resolved]
  - Decreased appetite [Recovered/Resolved]
  - Anaemia [Recovered/Resolved]
